FAERS Safety Report 8105753-7 (Version None)
Quarter: 2012Q1

REPORT INFORMATION
  Report Type: 
  Country: None (occurrence: None)
  Receive Date: 20120201
  Receipt Date: 20120126
  Transmission Date: 20120608
  Serious: Yes (Hospitalization)
  Sender: FDA-Public Use
  Company Number: FR-RB-036831-12

PATIENT
  Sex: Male

DRUGS (3)
  1. KERLONE NOS [Concomitant]
     Indication: PRODUCT USED FOR UNKNOWN INDICATION
     Dosage: DOSE NOT SPECIFIED
     Route: 065
  2. SERESTA 50 MG NOS [Concomitant]
     Indication: PRODUCT USED FOR UNKNOWN INDICATION
     Dosage: DOSE NOT SPECIFIED
     Route: 065
  3. SUBUTEX [Suspect]
     Indication: DRUG DEPENDENCE
     Route: 045

REACTIONS (2)
  - INTENTIONAL DRUG MISUSE [None]
  - CONVULSION [None]
